FAERS Safety Report 4504659-X (Version None)
Quarter: 2004Q4

REPORT INFORMATION
  Report Type: 
  Country: None (occurrence: None)
  Receive Date: 20041116
  Receipt Date: 20041104
  Transmission Date: 20050328
  Serious: Yes (Death)
  Sender: FDA-Public Use
  Company Number: 2004090468

PATIENT
  Sex: Male

DRUGS (3)
  1. DOSTINEX [Suspect]
     Indication: PITUITARY TUMOUR
     Dosage: 3.5 MG, WEEKLY, ORAL
     Route: 048
     Dates: start: 20040901, end: 20041001
  2. PREDNISONE [Concomitant]
  3. LEVOTHYROXINE SODIUM [Concomitant]

REACTIONS (1)
  - CEREBROVASCULAR ACCIDENT [None]
